FAERS Safety Report 21645790 (Version 1)
Quarter: 2022Q4

REPORT INFORMATION
  Report Type: Spontaneous
  Country: US (occurrence: US)
  Receive Date: 20221126
  Receipt Date: 20221126
  Transmission Date: 20230113
  Serious: Yes (Death, Hospitalization, Other)
  Sender: FDA-Public Use
  Company Number: US-CADILA HEALTHCARE LIMITED-US-ZYDUS-085041

PATIENT

DRUGS (5)
  1. METHOTREXATE [Suspect]
     Active Substance: METHOTREXATE
     Indication: Psoriasis
     Dosage: 10 MILLIGRAM WEEKLY
     Route: 065
  2. LEUCOVORIN [Suspect]
     Active Substance: LEUCOVORIN
     Indication: Toxicity to various agents
     Dosage: 50 MILLIGRAM, EVERY 8 HOURS
     Route: 065
  3. APREMILAST [Suspect]
     Active Substance: APREMILAST
     Indication: Psoriasis
     Dosage: 30 MILLIGRAM, QD
     Route: 065
  4. FILGRASTIM [Concomitant]
     Active Substance: FILGRASTIM
     Indication: Neutropenia
     Dosage: UNK
     Route: 065
  5. ASPIRIN [Concomitant]
     Active Substance: ASPIRIN
     Indication: Product used for unknown indication
     Dosage: 81 MILLIGRAM, QD
     Route: 065

REACTIONS (5)
  - Multiple organ dysfunction syndrome [Fatal]
  - Pancytopenia [Unknown]
  - Gastrointestinal disorder [Unknown]
  - Mucosal inflammation [Unknown]
  - Drug ineffective [Unknown]
